FAERS Safety Report 25983846 (Version 1)
Quarter: 2025Q4

REPORT INFORMATION
  Report Type: Spontaneous
  Country: US (occurrence: None)
  Receive Date: 20251031
  Receipt Date: 20251031
  Transmission Date: 20260117
  Serious: No
  Sender: FDA-CTU
  Company Number: None

PATIENT
  Age: 67 Year
  Sex: Male
  Weight: 96.8 kg

DRUGS (5)
  1. FLUOROURACIL [Suspect]
     Active Substance: FLUOROURACIL
     Dates: end: 20250924
  2. CAMPTOSAR [Suspect]
     Active Substance: IRINOTECAN HYDROCHLORIDE
     Dates: end: 20250923
  3. LEUCOVORIN CALCIUM [Suspect]
     Active Substance: LEUCOVORIN CALCIUM
     Dates: end: 20250923
  4. NIVOLUMAB [Suspect]
     Active Substance: NIVOLUMAB
  5. ELOXATIN [Suspect]
     Active Substance: OXALIPLATIN
     Dates: end: 20250923

REACTIONS (3)
  - Enterocolitis [None]
  - Decreased appetite [None]
  - Dehydration [None]

NARRATIVE: CASE EVENT DATE: 20250923
